FAERS Safety Report 11144967 (Version 1)
Quarter: 2015Q2

REPORT INFORMATION
  Report Type: Spontaneous
  Country: PT (occurrence: PT)
  Receive Date: 20150526
  Receipt Date: 20150526
  Transmission Date: 20150821
  Serious: Yes (Other)
  Sender: FDA-Public Use
  Company Number: PT-TEVA-564789ISR

PATIENT
  Age: 58 Year
  Sex: Male

DRUGS (1)
  1. CICLOSPORIN [Suspect]
     Active Substance: CYCLOSPORINE
     Indication: PSORIASIS
     Dosage: 4 MG/KG/DAY
     Route: 065

REACTIONS (3)
  - Secondary syphilis [Recovered/Resolved]
  - Psoriasis [Recovered/Resolved]
  - Alopecia [Unknown]
